FAERS Safety Report 13486406 (Version 1)
Quarter: 2017Q2

REPORT INFORMATION
  Report Type: Spontaneous
  Country: US (occurrence: US)
  Receive Date: 20170426
  Receipt Date: 20170426
  Transmission Date: 20170830
  Serious: Yes (Congenital Anomaly, Other)
  Sender: FDA-Public Use
  Company Number: US-PFIZER INC-2017176574

PATIENT
  Age: 73 Year
  Sex: Female
  Weight: 60 kg

DRUGS (6)
  1. FASLODEX [Concomitant]
     Active Substance: FULVESTRANT
     Indication: BREAST CANCER
     Dosage: 1 DF, MONTHLY, EVERY 4 WEEKS
     Route: 030
     Dates: start: 201701
  2. DENOSUMAB [Concomitant]
     Active Substance: DENOSUMAB
     Indication: BONE DENSITY ABNORMAL
     Dosage: 1 DF, MONTHLY
     Route: 058
     Dates: start: 201703
  3. VITAMIN C [Concomitant]
     Active Substance: ASCORBIC ACID
     Dosage: UNK
  4. IBRANCE [Suspect]
     Active Substance: PALBOCICLIB
     Indication: BREAST CANCER
     Dosage: 125 MG, CYCLIC (1X/DAY FOR 21 DAYS OUT OF 28 DAYS)
     Route: 048
     Dates: start: 201701
  5. CRANBERRY. [Concomitant]
     Active Substance: CRANBERRY
     Dosage: UNK
  6. DENOSUMAB [Concomitant]
     Active Substance: DENOSUMAB
     Indication: BREAST CANCER

REACTIONS (8)
  - Condition aggravated [Not Recovered/Not Resolved]
  - Tendon injury [Not Recovered/Not Resolved]
  - Neoplasm progression [Unknown]
  - Rotator cuff syndrome [Not Recovered/Not Resolved]
  - Body height decreased [Unknown]
  - Inflammation [Not Recovered/Not Resolved]
  - Musculoskeletal pain [Not Recovered/Not Resolved]
  - Weight decreased [Unknown]

NARRATIVE: CASE EVENT DATE: 20170415
